FAERS Safety Report 9097415 (Version 1)
Quarter: 2013Q1

REPORT INFORMATION
  Report Type: Spontaneous
  Country: US (occurrence: US)
  Receive Date: 20130212
  Receipt Date: 20130212
  Transmission Date: 20140127
  Serious: Yes (Other)
  Sender: FDA-Public Use
  Company Number: US-ELI_LILLY_AND_COMPANY-US201212008243

PATIENT
  Sex: Male

DRUGS (1)
  1. HUMALOG LISPRO [Suspect]

REACTIONS (6)
  - Pancreatitis [Unknown]
  - Dizziness [Unknown]
  - Chest pain [Unknown]
  - Hypoaesthesia [Unknown]
  - Abdominal pain [Unknown]
  - Headache [Unknown]
